FAERS Safety Report 5175306-1 (Version None)
Quarter: 2006Q4

REPORT INFORMATION
  Report Type: 
  Country: None (occurrence: None)
  Receive Date: 20061215
  Receipt Date: 20061129
  Transmission Date: 20070319
  Serious: Yes (Hospitalization, Other)
  Sender: FDA-Public Use
  Company Number: FR-RB-004551-06

PATIENT

DRUGS (2)
  1. BUPRENORPHINE HCL [Suspect]
     Indication: ACCIDENTAL DRUG INTAKE BY CHILD
     Dosage: DOSAGE UNKNOWN
     Route: 065
  2. METHADONE HCL [Suspect]
     Indication: ACCIDENTAL DRUG INTAKE BY CHILD
     Dosage: DOSAGE UNKNOWN
     Route: 065

REACTIONS (11)
  - ACCIDENTAL DRUG INTAKE BY CHILD [None]
  - BRADYCARDIA [None]
  - BRADYPNOEA [None]
  - CONVULSION [None]
  - HYPOTONIA [None]
  - MIOSIS [None]
  - RESPIRATORY FAILURE [None]
  - RESTLESSNESS [None]
  - SINUS TACHYCARDIA [None]
  - SOMNOLENCE [None]
  - VOMITING [None]
